FAERS Safety Report 13806028 (Version 1)
Quarter: 2017Q3

REPORT INFORMATION
  Report Type: Spontaneous
  Country: US (occurrence: US)
  Receive Date: 20170728
  Receipt Date: 20170728
  Transmission Date: 20171127
  Serious: No
  Sender: FDA-Public Use
  Company Number: US-GLAXOSMITHKLINE-US2017111980

PATIENT
  Age: 73 Year
  Sex: Female

DRUGS (6)
  1. VOLTAREN [Suspect]
     Active Substance: DICLOFENAC SODIUM
     Indication: UPPER LIMB FRACTURE
  2. VOLTAREN [Suspect]
     Active Substance: DICLOFENAC SODIUM
     Indication: BONE DISORDER
  3. VOLTAREN [Suspect]
     Active Substance: DICLOFENAC SODIUM
     Indication: ARTHROPATHY
  4. VOLTAREN [Suspect]
     Active Substance: DICLOFENAC SODIUM
     Indication: PAIN IN EXTREMITY
  5. VOLTAREN [Suspect]
     Active Substance: DICLOFENAC SODIUM
     Indication: FALL
     Dosage: UNK
     Dates: start: 2011
  6. VOLTAREN [Suspect]
     Active Substance: DICLOFENAC SODIUM
     Indication: OSTEOARTHRITIS

REACTIONS (5)
  - Drug effective for unapproved indication [Unknown]
  - Upper limb fracture [Recovered/Resolved]
  - Off label use [Unknown]
  - Osteoarthritis [Not Recovered/Not Resolved]
  - Fall [Recovered/Resolved]

NARRATIVE: CASE EVENT DATE: 2015
